FAERS Safety Report 8240281-X (Version None)
Quarter: 2012Q1

REPORT INFORMATION
  Report Type: 
  Country: None (occurrence: None)
  Receive Date: 20120328
  Receipt Date: 20120328
  Transmission Date: 20120608
  Serious: Yes (Death)
  Sender: FDA-Public Use
  Company Number: None

PATIENT
  Age: 66 Year
  Sex: Male
  Weight: 116 kg

DRUGS (5)
  1. ANGIOMAX [Concomitant]
  2. EFFIENT [Suspect]
     Indication: BLOOD PHOSPHORUS
     Dosage: 60.0 MG
     Route: 048
     Dates: start: 20120320, end: 20120320
  3. LOVENOX [Concomitant]
  4. INTEGRILIN [Concomitant]
     Indication: ACUTE MYOCARDIAL INFARCTION
     Dosage: 19ML/HR
     Route: 042
     Dates: start: 20120319, end: 20120320
  5. ASPIRIN [Concomitant]
     Route: 048

REACTIONS (3)
  - MENTAL STATUS CHANGES [None]
  - BRAIN DEATH [None]
  - INTRAVENTRICULAR HAEMORRHAGE [None]
